FAERS Safety Report 4689586-X (Version None)
Quarter: 2005Q2

REPORT INFORMATION
  Report Type: 
  Country: None (occurrence: None)
  Receive Date: 20050608
  Receipt Date: 20050401
  Transmission Date: 20051028
  Serious: No
  Sender: FDA-Public Use
  Company Number: 2005-BP-05301BP

PATIENT
  Sex: Female

DRUGS (4)
  1. SPIRIVA [Suspect]
     Dosage: 18 MCG (18 MCG, QD), IH
     Route: 055
     Dates: start: 20050330
  2. TOPROL-XL [Concomitant]
  3. FOSAMAX [Concomitant]
  4. VITAMINS [Concomitant]

REACTIONS (2)
  - COUGH [None]
  - RHINORRHOEA [None]
